FAERS Safety Report 4519302-3 (Version None)
Quarter: 2004Q4

REPORT INFORMATION
  Report Type: 
  Country: None (occurrence: None)
  Receive Date: 20041206
  Receipt Date: 20040719
  Transmission Date: 20050328
  Serious: Yes (Death)
  Sender: FDA-Public Use
  Company Number: US-GLAXOSMITHKLINE-A0535780A

PATIENT
  Age: 17 Year
  Sex: Male
  Weight: 122.7 kg

DRUGS (7)
  1. CARVEDILOL [Suspect]
     Dates: end: 20040701
  2. DEMADEX [Concomitant]
     Dosage: 20MG TWICE PER DAY
     Route: 048
     Dates: start: 20040201, end: 20040701
  3. FUROSEMIDE [Concomitant]
     Dosage: 80MG TWICE PER DAY
     Route: 048
     Dates: start: 20021201, end: 20040701
  4. ENALAPRIL [Concomitant]
     Dosage: 10MG TWICE PER DAY
     Route: 048
     Dates: start: 20021201, end: 20040701
  5. ALDACTONE [Concomitant]
     Dosage: 25MG TWICE PER DAY
     Route: 048
     Dates: start: 20021201, end: 20040701
  6. DIGOXIN [Concomitant]
     Dosage: .25MG PER DAY
     Route: 048
     Dates: start: 20021201, end: 20040701
  7. ZANTAC [Concomitant]
     Dosage: 150MG TWICE PER DAY
     Route: 048
     Dates: start: 20030901, end: 20040701

REACTIONS (3)
  - DEATH [None]
  - DIZZINESS [None]
  - SUDDEN DEATH [None]
